FAERS Safety Report 26172770 (Version 1)
Quarter: 2025Q4

REPORT INFORMATION
  Report Type: Spontaneous
  Country: US (occurrence: None)
  Receive Date: 20251218
  Receipt Date: 20251218
  Transmission Date: 20260117
  Serious: Yes (Hospitalization)
  Sender: APOTEX
  Company Number: US-APOTEX-2025AP034407

PATIENT
  Age: 70 Year
  Sex: Male

DRUGS (2)
  1. LEVOFLOXACIN [Interacting]
     Active Substance: LEVOFLOXACIN
     Indication: Osteomyelitis
     Dosage: 750 MILLIGRAM, QD
     Route: 061
  2. GLIPIZIDE [Interacting]
     Active Substance: GLIPIZIDE
     Indication: Type 2 diabetes mellitus
     Dosage: UNK
     Route: 065

REACTIONS (2)
  - Drug interaction [Recovered/Resolved]
  - Hypoglycaemia [Recovered/Resolved]
